FAERS Safety Report 6178590-0 (Version None)
Quarter: 2009Q2

REPORT INFORMATION
  Report Type: 
  Country: None (occurrence: None)
  Receive Date: 20090430
  Receipt Date: 20090416
  Transmission Date: 20091009
  Serious: Yes (Hospitalization)
  Sender: FDA-Public Use
  Company Number: 2009AL002245

PATIENT
  Age: 77 Year
  Sex: Male

DRUGS (3)
  1. IRINOTECAN HCL [Suspect]
     Indication: COLON CANCER
     Dosage: 130 MG/M**2;X1
  2. FLUOROURACIL [Concomitant]
  3. FOLINIC ACID [Concomitant]

REACTIONS (3)
  - ANAEMIA [None]
  - CYTOMEGALOVIRUS COLITIS [None]
  - INTESTINAL DILATATION [None]
